FAERS Safety Report 9840608 (Version 1)
Quarter: 2013Q4

REPORT INFORMATION
  Report Type: Spontaneous
  Country: JP (occurrence: None)
  Receive Date: 20131211
  Receipt Date: 20131211
  Transmission Date: 20140711
  Serious: Yes (Hospitalization)
  Sender: FDA-Public Use
  Company Number: SPV1-2009-01726

PATIENT
  Age: 11 Year
  Sex: Male
  Weight: 40 kg

DRUGS (7)
  1. ELAPRASE [Suspect]
     Indication: MUCOPOLYSACCHARIDOSIS II
     Dosage: 1X/WEEK
     Route: 041
     Dates: start: 20071206
  2. PHENOBARBITAL (PHENOBARBITAL) [Concomitant]
  3. BROMHEXINE HYDROCHLORIDE (BROMHEXINE HYDROCHLORIDE) [Concomitant]
  4. CARBOCISTEINE (CARBOCISTEINE) [Concomitant]
  5. PRANLUKAST (PRANLUKAST) [Concomitant]
  6. BUDESONIDE [Concomitant]
  7. PROCATEROL HYDROCHLORIDE [Concomitant]

REACTIONS (2)
  - Respiratory failure [None]
  - Gamma-glutamyltransferase increased [None]
